FAERS Safety Report 11840507 (Version 1)
Quarter: 2015Q4

REPORT INFORMATION
  Report Type: Spontaneous
  Country: US (occurrence: None)
  Receive Date: 20151215
  Receipt Date: 20151215
  Transmission Date: 20160305
  Serious: No
  Sender: FDA-Public Use
  Company Number: None

PATIENT
  Age: 32 Year
  Sex: Female
  Weight: 72.58 kg

DRUGS (1)
  1. YAZ [Suspect]
     Active Substance: DROSPIRENONE\ETHINYL ESTRADIOL
     Indication: CONTRACEPTION
     Route: 048

REACTIONS (4)
  - Abdominal discomfort [None]
  - Exposure during pregnancy [None]
  - Pregnancy on oral contraceptive [None]
  - Urinary tract disorder [None]

NARRATIVE: CASE EVENT DATE: 20151207
